FAERS Safety Report 13973621 (Version 1)
Quarter: 2017Q3

REPORT INFORMATION
  Report Type: Spontaneous
  Country: IT (occurrence: IT)
  Receive Date: 20170915
  Receipt Date: 20170915
  Transmission Date: 20171128
  Serious: Yes (Other)
  Sender: FDA-Public Use
  Company Number: IT-009507513-1709ITA005657

PATIENT
  Age: 51 Year
  Sex: Female

DRUGS (3)
  1. KEPPRA [Concomitant]
     Active Substance: LEVETIRACETAM
  2. LUMIGAN [Concomitant]
     Active Substance: BIMATOPROST
  3. TEMOZOLOMIDE. [Suspect]
     Active Substance: TEMOZOLOMIDE
     Indication: GLIOBLASTOMA MULTIFORME
     Dosage: 120 MG, DAILY
     Route: 048
     Dates: start: 20170518, end: 20170630

REACTIONS (5)
  - Hypertransaminasaemia [Recovering/Resolving]
  - Thrombocytopenia [Recovering/Resolving]
  - Lymphopenia [Recovering/Resolving]
  - Cytomegalovirus test positive [Recovering/Resolving]
  - Pyrexia [Recovering/Resolving]

NARRATIVE: CASE EVENT DATE: 20170626
